FAERS Safety Report 9248401 (Version 1)
Quarter: 2013Q2

REPORT INFORMATION
  Report Type: Spontaneous
  Country: US (occurrence: US)
  Receive Date: 20130423
  Receipt Date: 20130423
  Transmission Date: 20140414
  Serious: Yes (Hospitalization)
  Sender: FDA-Public Use
  Company Number: US-BAYER-2013-050241

PATIENT
  Age: 20 Year
  Sex: Female

DRUGS (6)
  1. YAZ [Suspect]
  2. NAPROXEN [Concomitant]
  3. FLEXERIL [Concomitant]
  4. TYLENOL #3 [Concomitant]
  5. ATIVAN [Concomitant]
     Indication: ANXIETY
  6. BACTRIM [Concomitant]
     Indication: URINARY TRACT INFECTION

REACTIONS (1)
  - Pulmonary embolism [None]
